FAERS Safety Report 15097513 (Version 1)
Quarter: 2018Q3

REPORT INFORMATION
  Report Type: Spontaneous
  Country: DE (occurrence: DE)
  Receive Date: 20180702
  Receipt Date: 20180702
  Transmission Date: 20181010
  Serious: Yes (Hospitalization)
  Sender: FDA-Public Use
  Company Number: DE-SIGMAPHARM LABORATORIES, LLC-2018SIG00032

PATIENT
  Age: 74 Year

DRUGS (2)
  1. ROPIVACAINE [Concomitant]
     Active Substance: ROPIVACAINE
     Route: 008
  2. POTASSIUM CHLORIDE. [Suspect]
     Active Substance: POTASSIUM CHLORIDE
     Indication: HYPOKALAEMIA
     Dosage: 800 MG (12 ML 7.4% POTASSIUM CHLORIDE SOLUTION), ONCE
     Route: 008

REACTIONS (5)
  - Loss of consciousness [Recovered/Resolved]
  - Autonomic nervous system imbalance [Recovering/Resolving]
  - Stress cardiomyopathy [Recovering/Resolving]
  - Incorrect route of drug administration [Recovered/Resolved]
  - Paralysis [Recovered/Resolved]
